FAERS Safety Report 20689745 (Version 1)
Quarter: 2022Q2

REPORT INFORMATION
  Report Type: Spontaneous
  Country: PL (occurrence: PL)
  Receive Date: 20220408
  Receipt Date: 20220408
  Transmission Date: 20220721
  Serious: Yes (Life-Threatening, Other)
  Sender: FDA-Public Use
  Company Number: PL-NOVARTISPH-NVSC2022PL079576

PATIENT
  Age: 55 Year

DRUGS (4)
  1. DEXAMETHASONE [Suspect]
     Active Substance: DEXAMETHASONE
     Indication: Product used for unknown indication
     Dosage: 40 MG (40 MILLIGRAM, ON DAYS 1, 8 AND 15)
     Route: 065
     Dates: start: 20200702
  2. KYPROLIS [Suspect]
     Active Substance: CARFILZOMIB
     Indication: Product used for unknown indication
     Dosage: 20 MG/M2 (MILLIGRAM PER SQUARE METRE)
     Route: 065
     Dates: start: 20200702
  3. KYPROLIS [Suspect]
     Active Substance: CARFILZOMIB
     Dosage: 70 MG/M2 (70 MILLIGRAM/SQ. METER, ON DAYS 8 AND 15)
     Route: 065
  4. DARATUMUMAB [Suspect]
     Active Substance: DARATUMUMAB
     Indication: Product used for unknown indication
     Dosage: 16 MG/M2 (16 MILLIGRAM/SQ. METER, ON DAY 1, 7, 15 OF CYCLE)
     Route: 065
     Dates: start: 20200702

REACTIONS (5)
  - Chest pain [Unknown]
  - Left ventricular enlargement [Unknown]
  - Normocytic anaemia [Unknown]
  - Ventricular hypokinesia [Unknown]
  - Thrombocytopenia [Unknown]

NARRATIVE: CASE EVENT DATE: 20200101
